FAERS Safety Report 6027309-2 (Version None)
Quarter: 2009Q1

REPORT INFORMATION
  Report Type: 
  Country: None (occurrence: None)
  Receive Date: 20090105
  Receipt Date: 20090102
  Transmission Date: 20090719
  Serious: Yes (Disabling)
  Sender: FDA-Public Use
  Company Number: A0762074A

PATIENT
  Age: 64 Year
  Sex: Female

DRUGS (4)
  1. REQUIP [Suspect]
     Indication: RESTLESS LEGS SYNDROME
     Dosage: 1MG THREE TIMES PER DAY
     Route: 048
  2. OXYCODONE [Concomitant]
  3. DIOVAN [Concomitant]
  4. SIMVASTATIN [Concomitant]

REACTIONS (2)
  - DIZZINESS [None]
  - FALL [None]
